FAERS Safety Report 18474091 (Version 1)
Quarter: 2020Q4

REPORT INFORMATION
  Report Type: Spontaneous
  Country: US (occurrence: US)
  Receive Date: 20201106
  Receipt Date: 20201106
  Transmission Date: 20210114
  Serious: No
  Sender: FDA-Public Use
  Company Number: US-PFIZER INC-2020064171

PATIENT
  Age: 63 Year
  Sex: Female

DRUGS (1)
  1. LYRICA [Suspect]
     Active Substance: PREGABALIN
     Dosage: 400 MG, DAILY (FOUR 100MG AT NIGHT)
     Route: 048

REACTIONS (1)
  - Somnolence [Unknown]
